FAERS Safety Report 6645453-3 (Version None)
Quarter: 2010Q1

REPORT INFORMATION
  Report Type: 
  Country: None (occurrence: None)
  Receive Date: 20100322
  Receipt Date: 20100311
  Transmission Date: 20100710
  Serious: Yes (Hospitalization)
  Sender: FDA-Public Use
  Company Number: US-ASTRAZENECA-2010SE10645

PATIENT
  Sex: Male

DRUGS (3)
  1. ENTOCORT EC [Suspect]
     Indication: COLITIS
     Route: 048
  2. HYDROCODONE [Concomitant]
  3. DILANTIN [Concomitant]

REACTIONS (1)
  - FALL [None]
